FAERS Safety Report 15667673 (Version 1)
Quarter: 2018Q4

REPORT INFORMATION
  Report Type: Spontaneous
  Country: US (occurrence: US)
  Receive Date: 20181128
  Receipt Date: 20181128
  Transmission Date: 20190205
  Serious: Yes (Other)
  Sender: FDA-Public Use
  Company Number: US-SUNOVION-2018SUN004624

PATIENT
  Sex: Female

DRUGS (1)
  1. LATUDA [Suspect]
     Active Substance: LURASIDONE HYDROCHLORIDE
     Dosage: 120 MG, UNK
     Route: 048

REACTIONS (6)
  - Mania [Not Recovered/Not Resolved]
  - Depression [Not Recovered/Not Resolved]
  - Akathisia [Not Recovered/Not Resolved]
  - Self-injurious ideation [Recovered/Resolved]
  - Anxiety [Not Recovered/Not Resolved]
  - Violence-related symptom [Recovered/Resolved]
